FAERS Safety Report 5569034-8 (Version None)
Quarter: 2007Q4

REPORT INFORMATION
  Report Type: 
  Country: None (occurrence: None)
  Receive Date: 20071220
  Receipt Date: 20070522
  Transmission Date: 20080405
  Serious: No
  Sender: FDA-Public Use
  Company Number: A0652507A

PATIENT
  Sex: Male

DRUGS (7)
  1. AVODART [Suspect]
     Route: 048
  2. UNKNOWN [Concomitant]
  3. ZOCOR [Concomitant]
  4. SPIRIVA [Concomitant]
  5. ALBUTEROL [Concomitant]
     Route: 055
  6. IPRATROPIUM BROMIDE [Concomitant]
  7. ZANTAC [Concomitant]

REACTIONS (1)
  - NASAL CONGESTION [None]
